FAERS Safety Report 5288782-0 (Version None)
Quarter: 2007Q2

REPORT INFORMATION
  Report Type: 
  Country: None (occurrence: None)
  Receive Date: 20070405
  Receipt Date: 20070327
  Transmission Date: 20071010
  Serious: Yes (Hospitalization)
  Sender: FDA-Public Use
  Company Number: CH-ABBOTT-07P-151-0363183-00

PATIENT
  Age: 63 Year
  Sex: Female

DRUGS (1)
  1. DEPAKENE [Suspect]
     Indication: EPILEPSY
     Dates: end: 20070101

REACTIONS (5)
  - ASTHENIA [None]
  - FALL [None]
  - GAIT DISTURBANCE [None]
  - HYPERAMMONAEMIA [None]
  - NERVOUS SYSTEM DISORDER [None]
